FAERS Safety Report 5169563-5 (Version None)
Quarter: 2006Q4

REPORT INFORMATION
  Report Type: 
  Country: None (occurrence: None)
  Receive Date: 20061204
  Receipt Date: 20061122
  Transmission Date: 20070319
  Serious: Yes (Hospitalization)
  Sender: FDA-Public Use
  Company Number: 2006P1000534

PATIENT
  Age: 58 Year
  Sex: Male
  Weight: 75 kg

DRUGS (5)
  1. RETEPLASE (RETEPLASE) [Suspect]
     Indication: ACUTE MYOCARDIAL INFARCTION
     Dosage: X1; IV
     Route: 042
     Dates: start: 20041216, end: 20041216
  2. RETEPLASE (RETEPLASE) [Suspect]
     Indication: ACUTE MYOCARDIAL INFARCTION
     Dosage: X1; IV
     Route: 042
     Dates: start: 20041216, end: 20041216
  3. ABCIXIMAB (ABCIXIMAB) [Suspect]
     Indication: ACUTE MYOCARDIAL INFARCTION
     Dosage: 9.4 ML; X1; IV;  3.8 ML; QH; IV
     Route: 042
     Dates: start: 20041216, end: 20041216
  4. ABCIXIMAB (ABCIXIMAB) [Suspect]
     Indication: ACUTE MYOCARDIAL INFARCTION
     Dosage: 9.4 ML; X1; IV;  3.8 ML; QH; IV
     Route: 042
     Dates: start: 20041216
  5. HEPARIN [Concomitant]

REACTIONS (4)
  - CORONARY ARTERY DISEASE [None]
  - HIGH DENSITY LIPOPROTEIN INCREASED [None]
  - MYOCARDIAL ISCHAEMIA [None]
  - THROMBOCYTOPENIA [None]
